FAERS Safety Report 11549781 (Version 1)
Quarter: 2015Q3

REPORT INFORMATION
  Report Type: Spontaneous
  Country: US (occurrence: US)
  Receive Date: 20150924
  Receipt Date: 20150924
  Transmission Date: 20151125
  Serious: No
  Sender: FDA-Public Use
  Company Number: US-INCYTE CORPORATION-2015IN002251

PATIENT
  Age: 71 Year
  Sex: Female
  Weight: 53.97 kg

DRUGS (10)
  1. VITAMIN D3 [Concomitant]
     Active Substance: CHOLECALCIFEROL
     Dosage: UNK
  2. FELODIPINE. [Concomitant]
     Active Substance: FELODIPINE
     Dosage: UNK
  3. PRENATAL VITAMINS                  /07426201/ [Concomitant]
     Active Substance: ASCORBIC ACID\BIOTIN\MINERALS\NIACIN\RETINOL\TOCOPHEROL\VITAMIN B\VITAMIN D
     Dosage: UNK
  4. OCUVITE [Concomitant]
     Active Substance: VITAMINS
     Dosage: UNK
  5. AMLODIPINE [Concomitant]
     Active Substance: AMLODIPINE BESYLATE
     Dosage: UNK
  6. OMEGA 3 FISH OIL                   /01334101/ [Concomitant]
     Dosage: UNK
  7. JAKAFI [Suspect]
     Active Substance: RUXOLITINIB
     Indication: POLYCYTHAEMIA VERA
     Dosage: 15 MG, BID
     Route: 048
     Dates: start: 20150421
  8. FOLIC ACID. [Concomitant]
     Active Substance: FOLIC ACID
     Dosage: UNK
  9. BIOTIN [Concomitant]
     Active Substance: BIOTIN
     Dosage: UNK
  10. CRANBERRY                          /01512301/ [Concomitant]
     Active Substance: CRANBERRY
     Dosage: UNK

REACTIONS (5)
  - Increased appetite [Unknown]
  - Weight increased [Unknown]
  - Drug dispensing error [Unknown]
  - Contusion [Unknown]
  - Flatulence [Unknown]

NARRATIVE: CASE EVENT DATE: 2015
